FAERS Safety Report 14959322 (Version 1)
Quarter: 2018Q2

REPORT INFORMATION
  Report Type: Spontaneous
  Country: US (occurrence: US)
  Receive Date: 20180510
  Receipt Date: 20180510
  Transmission Date: 20180711
  Serious: Yes (Hospitalization)
  Sender: FDA-Public Use
  Company Number: None

PATIENT
  Age: 52 Year
  Sex: Male

DRUGS (2)
  1. 5FU [Suspect]
     Active Substance: FLUOROURACIL
     Indication: PSEUDOMYXOMA PERITONEI
     Dosage: ?          OTHER FREQUENCY:OVER 46 HOURS;?
     Route: 041
     Dates: start: 20180417, end: 20180419
  2. IRINOTECAN [Suspect]
     Active Substance: IRINOTECAN
     Indication: PSEUDOMYXOMA PERITONEI
     Dosage: ?          OTHER FREQUENCY:ONCE;?
     Route: 041
     Dates: start: 20180417, end: 20180417

REACTIONS (2)
  - Dehydration [None]
  - Mucosal inflammation [None]

NARRATIVE: CASE EVENT DATE: 20180423
